FAERS Safety Report 13516768 (Version 1)
Quarter: 2017Q2

REPORT INFORMATION
  Report Type: Spontaneous
  Country: US (occurrence: US)
  Receive Date: 20170504
  Receipt Date: 20170504
  Transmission Date: 20170830
  Serious: Yes (Other)
  Sender: FDA-Public Use
  Company Number: None

PATIENT
  Age: 53 Year
  Sex: Female
  Weight: 94.05 kg

DRUGS (10)
  1. CAPSAICIN 0.1% / TOPICAL ANALGES [Suspect]
     Active Substance: CAPSAICIN
     Indication: MUSCULOSKELETAL PAIN
     Dosage: ?          QUANTITY:1.5 OUNCE(S);?
     Route: 061
     Dates: start: 20170504, end: 20170504
  2. VITAMIN E [Concomitant]
     Active Substance: .ALPHA.-TOCOPHEROL
  3. LOSARTAN. [Concomitant]
     Active Substance: LOSARTAN
  4. SYNTHROID [Concomitant]
     Active Substance: LEVOTHYROXINE SODIUM
  5. PANTOPRAZOLE [Concomitant]
     Active Substance: PANTOPRAZOLE
  6. VITAMIN C [Concomitant]
     Active Substance: ASCORBIC ACID
  7. VITAMIN D3 [Concomitant]
     Active Substance: CHOLECALCIFEROL
  8. PLAQUENIL [Concomitant]
     Active Substance: HYDROXYCHLOROQUINE SULFATE
  9. ATENOLOL. [Concomitant]
     Active Substance: ATENOLOL
  10. PRAVASTATIN. [Concomitant]
     Active Substance: PRAVASTATIN

REACTIONS (5)
  - Burns third degree [None]
  - Burning sensation [None]
  - Erythema [None]
  - Swelling [None]
  - Rash [None]

NARRATIVE: CASE EVENT DATE: 20170504
